FAERS Safety Report 6279162-X (Version None)
Quarter: 2009Q3

REPORT INFORMATION
  Report Type: 
  Country: None (occurrence: None)
  Receive Date: 20090723
  Receipt Date: 20090715
  Transmission Date: 20100115
  Serious: Yes (Hospitalization)
  Sender: FDA-Public Use
  Company Number: FR-ROCHE-633548

PATIENT
  Age: 59 Year
  Sex: Female

DRUGS (3)
  1. XENICAL [Suspect]
     Indication: OBESITY
     Route: 048
  2. CLOZAPINE [Interacting]
     Route: 065
  3. VALPROATE SODIUM [Concomitant]
     Route: 065

REACTIONS (2)
  - DRUG INTERACTION [None]
  - DRUG LEVEL DECREASED [None]
